APPROVED DRUG PRODUCT: DEFERASIROX
Active Ingredient: DEFERASIROX
Strength: 180MG
Dosage Form/Route: GRANULE;ORAL
Application: A214650 | Product #001 | TE Code: AB
Applicant: MSN LABORATORIES PRIVATE LTD
Approved: Mar 17, 2021 | RLD: No | RS: No | Type: RX